FAERS Safety Report 9269910 (Version 1)
Quarter: 2013Q2

REPORT INFORMATION
  Report Type: Spontaneous
  Country: US (occurrence: US)
  Receive Date: 20130503
  Receipt Date: 20130503
  Transmission Date: 20140414
  Serious: Yes (Hospitalization, Congenital Anomaly, Other)
  Sender: FDA-Public Use
  Company Number: US-PFIZER INC-2013136803

PATIENT
  Sex: Male

DRUGS (1)
  1. ZOLOFT [Suspect]
     Indication: DEPRESSION
     Dosage: UNK
     Route: 064
     Dates: start: 1999, end: 2000

REACTIONS (6)
  - Maternal exposure during pregnancy [Unknown]
  - Persistent foetal circulation [Unknown]
  - Neonatal respiratory failure [Unknown]
  - Congenital diaphragmatic hernia [Unknown]
  - Deafness [Unknown]
  - Scoliosis [Unknown]
